FAERS Safety Report 9452718 (Version 2)
Quarter: 2013Q3

REPORT INFORMATION
  Report Type: Report from Study
  Country: US (occurrence: US)
  Receive Date: 20130812
  Receipt Date: 20130814
  Transmission Date: 20140515
  Serious: Yes (Hospitalization, Other)
  Sender: FDA-Public Use
  Company Number: PHHY2013US085433

PATIENT
  Age: 13 Year
  Sex: Female
  Weight: 70.7 kg

DRUGS (10)
  1. ICL670A [Suspect]
     Indication: IRON OVERLOAD
     Dosage: 2500 MG, DAILY
  2. SINGULAR [Concomitant]
     Indication: WHEEZING
     Dosage: 5 MG, DAILY
  3. FOLIC [Concomitant]
     Dosage: 1 MG, UNK
  4. METHADONE [Concomitant]
     Indication: PAIN
     Dosage: 5 MG, DAILY
     Route: 048
  5. MIRALAX [Concomitant]
     Indication: ABNORMAL FAECES
     Dosage: 17 MG, UNK
     Route: 048
  6. MIRALAX [Concomitant]
     Dosage: 17 MG, UNK
  7. OXYCODONE [Concomitant]
     Dosage: UNK UKN, UNK
     Dates: start: 20130422, end: 20130422
  8. OXYCODONE [Concomitant]
     Dosage: 10 MG, DAILY
  9. MOTRIN [Concomitant]
     Indication: PAIN
     Dosage: 5 MG, DAILY
  10. PENICILLIN V KENT [Concomitant]
     Indication: PROPHYLAXIS
     Dosage: 250 MG, UNK

REACTIONS (3)
  - Back pain [Recovered/Resolved]
  - Sickle cell anaemia with crisis [Recovered/Resolved]
  - Upper respiratory tract infection [Recovering/Resolving]
